FAERS Safety Report 7919624-X (Version None)
Quarter: 2011Q4

REPORT INFORMATION
  Report Type: 
  Country: None (occurrence: None)
  Receive Date: 20111117
  Receipt Date: 20111104
  Transmission Date: 20120403
  Serious: Yes (Hospitalization, Other)
  Sender: FDA-Public Use
  Company Number: US-BAYER-2011-000947

PATIENT
  Age: 40 Year
  Sex: Female
  Weight: 92.971 kg

DRUGS (2)
  1. YASMIN [Suspect]
     Indication: DYSFUNCTIONAL UTERINE BLEEDING
     Dosage: UNK
     Dates: start: 20090213, end: 20090416
  2. MIRENA [Concomitant]
     Dosage: UNK
     Dates: start: 20090121, end: 20090213

REACTIONS (18)
  - HEADACHE [None]
  - MIGRAINE [None]
  - VISUAL IMPAIRMENT [None]
  - JUGULAR VEIN THROMBOSIS [None]
  - FEAR OF DISEASE [None]
  - INTRACRANIAL VENOUS SINUS THROMBOSIS [None]
  - BENIGN INTRACRANIAL HYPERTENSION [None]
  - PAIN [None]
  - INJURY [None]
  - NAUSEA [None]
  - VOMITING [None]
  - COGNITIVE DISORDER [None]
  - CEREBRAL INFARCTION [None]
  - HAEMORRHAGIC TRANSFORMATION STROKE [None]
  - ABNORMAL SENSATION IN EYE [None]
  - CONFUSIONAL STATE [None]
  - EMOTIONAL DISTRESS [None]
  - ANXIETY [None]
